FAERS Safety Report 21851502 (Version 2)
Quarter: 2023Q2

REPORT INFORMATION
  Report Type: Report from Study
  Country: US (occurrence: US)
  Receive Date: 20230112
  Receipt Date: 20230417
  Transmission Date: 20230722
  Serious: No
  Sender: FDA-Public Use
  Company Number: US-ABBVIE-4261656

PATIENT
  Sex: Female

DRUGS (2)
  1. HUMIRA [Suspect]
     Active Substance: ADALIMUMAB
     Indication: Crohn^s disease
     Route: 058
     Dates: start: 20220711
  2. HUMIRA [Suspect]
     Active Substance: ADALIMUMAB
     Route: 058
     Dates: start: 20220711

REACTIONS (5)
  - Injection site pain [Recovered/Resolved]
  - Injection site pruritus [Unknown]
  - Injection site papule [Recovered/Resolved]
  - Device leakage [Unknown]
  - Injection site swelling [Recovered/Resolved]
